FAERS Safety Report 25543620 (Version 1)
Quarter: 2025Q3

REPORT INFORMATION
  Report Type: Spontaneous
  Country: US (occurrence: US)
  Receive Date: 20250711
  Receipt Date: 20250711
  Transmission Date: 20251021
  Serious: Yes (Other)
  Sender: RANBAXY
  Company Number: US-SUN PHARMACEUTICAL INDUSTRIES LTD-2025R1-516023

PATIENT
  Age: 58 Year
  Sex: Female

DRUGS (2)
  1. ASPIRIN [Suspect]
     Active Substance: ASPIRIN
     Indication: Raynaud^s phenomenon
     Route: 065
  2. SILDENAFIL [Suspect]
     Active Substance: SILDENAFIL
     Indication: Raynaud^s phenomenon
     Route: 065

REACTIONS (3)
  - Orthostatic hypotension [Unknown]
  - Drug intolerance [Unknown]
  - Tinnitus [Unknown]
